FAERS Safety Report 6014609-5 (Version None)
Quarter: 2008Q4

REPORT INFORMATION
  Report Type: 
  Country: None (occurrence: None)
  Receive Date: 20081219
  Receipt Date: 20080915
  Transmission Date: 20090506
  Serious: No
  Sender: FDA-Public Use
  Company Number: A0747487A

PATIENT
  Age: 77 Year
  Sex: Male

DRUGS (2)
  1. AVODART [Suspect]
     Indication: BENIGN PROSTATIC HYPERPLASIA
     Dosage: .5MG PER DAY
     Route: 048
     Dates: start: 20080101, end: 20080908
  2. TOPROL-XL [Concomitant]

REACTIONS (2)
  - ALOPECIA [None]
  - DRUG INEFFECTIVE [None]
